FAERS Safety Report 19476929 (Version 1)
Quarter: 2021Q2

REPORT INFORMATION
  Report Type: Spontaneous
  Country: US (occurrence: US)
  Receive Date: 20210630
  Receipt Date: 20210630
  Transmission Date: 20210717
  Serious: No
  Sender: FDA-Public Use
  Company Number: US-PFIZER INC-2021646448

PATIENT
  Sex: Female

DRUGS (1)
  1. MISOPROSTOL. [Suspect]
     Active Substance: MISOPROSTOL
     Dosage: UNK

REACTIONS (2)
  - Abdominal pain upper [Unknown]
  - Drug ineffective [Unknown]
